FAERS Safety Report 19635086 (Version 1)
Quarter: 2021Q3

REPORT INFORMATION
  Report Type: Spontaneous
  Country: US (occurrence: US)
  Receive Date: 20210730
  Receipt Date: 20210730
  Transmission Date: 20211014
  Serious: Yes (Other)
  Sender: FDA-Public Use
  Company Number: US-SA-2021SA248474

PATIENT
  Age: 33 Year
  Sex: Male

DRUGS (2)
  1. ANTI?THYMOCYTE GLOBULIN (RABBIT) NOS [Suspect]
     Active Substance: LAPINE T-LYMPHOCYTE IMMUNE GLOBULIN
     Indication: PANCREAS TRANSPLANT REJECTION
  2. CYCLOSPORINE. [Suspect]
     Active Substance: CYCLOSPORINE
     Indication: PANCREAS TRANSPLANT REJECTION

REACTIONS (2)
  - Haemoglobin decreased [Recovered/Resolved]
  - Cold type haemolytic anaemia [Recovered/Resolved]
